FAERS Safety Report 7513216-2 (Version None)
Quarter: 2011Q2

REPORT INFORMATION
  Report Type: 
  Country: None (occurrence: None)
  Receive Date: 20110531
  Receipt Date: 20110510
  Transmission Date: 20111010
  Serious: Yes (Other)
  Sender: FDA-Public Use
  Company Number: US-BAYER-2011-018732

PATIENT
  Age: 19 Year
  Sex: Female
  Weight: 81.633 kg

DRUGS (6)
  1. NEXIUM [Concomitant]
     Indication: GASTROOESOPHAGEAL REFLUX DISEASE
     Dosage: UNK
     Dates: start: 20080301, end: 20090901
  2. CHANTIX [Concomitant]
     Indication: EX-TOBACCO USER
  3. DROSPIRENONE AND ETHINYL ESTRADIOL [Suspect]
     Indication: MENSTRUAL DISORDER
  4. IBUPROFEN [Concomitant]
     Dosage: UNK
     Dates: start: 20080901, end: 20081201
  5. METRONIDAZOLE [Concomitant]
     Dosage: UNK
     Dates: start: 20081001, end: 20081201
  6. DROSPIRENONE AND ETHINYL ESTRADIOL [Suspect]
     Indication: CONTRACEPTION
     Dosage: UNK UNK, QD
     Dates: start: 20080601, end: 20091009

REACTIONS (3)
  - CHOLECYSTITIS CHRONIC [None]
  - GALLBLADDER DISORDER [None]
  - BILIARY DYSKINESIA [None]
